FAERS Safety Report 13364028 (Version 1)
Quarter: 2017Q1

REPORT INFORMATION
  Report Type: Spontaneous
  Country: US (occurrence: US)
  Receive Date: 20170323
  Receipt Date: 20170323
  Transmission Date: 20170429
  Serious: No
  Sender: FDA-Public Use
  Company Number: US-ELI_LILLY_AND_COMPANY-US201608004349

PATIENT
  Age: 51 Year
  Sex: Female

DRUGS (2)
  1. SEROQUEL [Concomitant]
     Active Substance: QUETIAPINE FUMARATE
     Indication: PRODUCT USED FOR UNKNOWN INDICATION
     Dosage: UNK, UNKNOWN
     Route: 065
  2. CYMBALTA [Suspect]
     Active Substance: DULOXETINE HYDROCHLORIDE
     Indication: PRODUCT USED FOR UNKNOWN INDICATION
     Dosage: 60 MG, QD
     Route: 048

REACTIONS (20)
  - Vertigo [Unknown]
  - Drug withdrawal syndrome [Unknown]
  - Tearfulness [Unknown]
  - Insomnia [Unknown]
  - Depressed mood [Unknown]
  - Fatigue [Unknown]
  - Dizziness [Unknown]
  - Poor quality sleep [Unknown]
  - Agitation [Unknown]
  - Affect lability [Unknown]
  - Alanine aminotransferase increased [Unknown]
  - Paraesthesia [Unknown]
  - Headache [Unknown]
  - Hallucination, auditory [Unknown]
  - Nausea [Unknown]
  - Vomiting [Unknown]
  - Dysphoria [Unknown]
  - Diarrhoea [Unknown]
  - Hyperhidrosis [Unknown]
  - Irritability [Unknown]

NARRATIVE: CASE EVENT DATE: 20151228
